FAERS Safety Report 8844736 (Version 3)
Quarter: 2014Q2

REPORT INFORMATION
  Report Type: Spontaneous
  Country: US (occurrence: US)
  Receive Date: 20121017
  Receipt Date: 20131024
  Transmission Date: 20141212
  Serious: No
  Sender: FDA-Public Use
  Company Number: US-PFIZER INC-2012255004

PATIENT
  Sex: Female
  Weight: 54.42 kg

DRUGS (1)
  1. ADVIL PM [Suspect]
     Indication: INSOMNIA
     Dosage: 400/76 MG BY TAKING TWO CAPLETS OF 200/38 MG, ONCE A DAY
     Route: 048
     Dates: start: 201209

REACTIONS (1)
  - Drug ineffective [Unknown]
